FAERS Safety Report 12404430 (Version 1)
Quarter: 2016Q2

REPORT INFORMATION
  Report Type: Report from Study
  Country: US (occurrence: US)
  Receive Date: 20160525
  Receipt Date: 20160525
  Transmission Date: 20160815
  Serious: Yes (Hospitalization)
  Sender: FDA-Public Use
  Company Number: US-GILEAD-2016-0215127

PATIENT
  Age: 63 Year
  Sex: Female

DRUGS (10)
  1. POTASSIUM [Concomitant]
     Active Substance: POTASSIUM
  2. AMBRISENTAN [Suspect]
     Active Substance: AMBRISENTAN
     Indication: PULMONARY HYPERTENSION
     Dosage: 10 MG, QD
     Route: 065
     Dates: start: 20130128
  3. TRAMADOL. [Concomitant]
     Active Substance: TRAMADOL
  4. TORSEMIDE. [Concomitant]
     Active Substance: TORSEMIDE
  5. WARFARIN [Concomitant]
     Active Substance: WARFARIN
  6. REMODULIN [Concomitant]
     Active Substance: TREPROSTINIL
  7. ALLOPURINOL. [Concomitant]
     Active Substance: ALLOPURINOL
  8. DIGOXIN. [Concomitant]
     Active Substance: DIGOXIN
  9. GLYBURIDE. [Concomitant]
     Active Substance: GLYBURIDE
  10. CITALOPRAM [Concomitant]
     Active Substance: CITALOPRAM HYDROBROMIDE

REACTIONS (3)
  - Unevaluable event [Unknown]
  - Localised intraabdominal fluid collection [Unknown]
  - Device dislocation [Recovered/Resolved]

NARRATIVE: CASE EVENT DATE: 20160510
